FAERS Safety Report 4864906-1 (Version None)
Quarter: 2005Q4

REPORT INFORMATION
  Report Type: 
  Country: None (occurrence: None)
  Receive Date: 20051201
  Receipt Date: 20050728
  Transmission Date: 20060501
  Serious: No
  Sender: FDA-Public Use
  Company Number: 2005PV000693

PATIENT
  Age: 73 Year
  Sex: Female
  Weight: 95.2554 kg

DRUGS (17)
  1. BYETTA [Suspect]
     Indication: DIABETES MELLITUS NON-INSULIN-DEPENDENT
     Dosage: 5 MCG; BID; SC
     Route: 058
     Dates: start: 20050726
  2. PRANDINE ^NOVO NORDISK^ [Concomitant]
  3. ACTOS [Concomitant]
  4. METFORMIN [Concomitant]
  5. DIOVAN [Concomitant]
  6. VERAPAMIL [Concomitant]
  7. TOPROL-XL [Concomitant]
  8. CARDURA [Concomitant]
  9. NEXIUM [Concomitant]
  10. TOPAMAX [Concomitant]
  11. LASIX [Concomitant]
  12. KLOR-CON [Concomitant]
  13. DETROL [Concomitant]
  14. SYNTHROID [Concomitant]
  15. ZETIA [Concomitant]
  16. LESCOL XL [Concomitant]
  17. CALCIUM GLUCONATE [Concomitant]

REACTIONS (5)
  - DYSPEPSIA [None]
  - INJECTION SITE BRUISING [None]
  - INJECTION SITE HAEMORRHAGE [None]
  - INJECTION SITE MASS [None]
  - INJECTION SITE PAIN [None]
